FAERS Safety Report 4893640-7 (Version None)
Quarter: 2006Q1

REPORT INFORMATION
  Report Type: 
  Country: None (occurrence: None)
  Receive Date: 20060124
  Receipt Date: 20060112
  Transmission Date: 20060701
  Serious: Yes (Hospitalization)
  Sender: FDA-Public Use
  Company Number: 2005161997

PATIENT
  Age: 61 Year
  Sex: Female

DRUGS (5)
  1. ATORVASTATIN CALCIUM [Suspect]
     Indication: DYSLIPIDAEMIA
     Dosage: 10 MG (10 MG, 1 IN 1 D), ORAL
     Route: 048
     Dates: start: 20000510
  2. GLUCOFORMIN (METFORMIN HYDROCHLORIDE) [Concomitant]
  3. AVANDIA [Concomitant]
  4. LEVOTHYROXINE SODIUM [Concomitant]
  5. MONOCORDIL (ISOSORBIDE MONONITRATE) [Concomitant]

REACTIONS (6)
  - BLOOD CHOLESTEROL INCREASED [None]
  - BLOOD TRIGLYCERIDES INCREASED [None]
  - CARDIAC DISORDER [None]
  - CORONARY ARTERY SURGERY [None]
  - FATIGUE [None]
  - HEART VALVE REPLACEMENT [None]
